FAERS Safety Report 17418675 (Version 3)
Quarter: 2020Q2

REPORT INFORMATION
  Report Type: Spontaneous
  Country: US (occurrence: US)
  Receive Date: 20200214
  Receipt Date: 20200507
  Transmission Date: 20200713
  Serious: Yes (Other)
  Sender: FDA-Public Use
  Company Number: US-BRISTOL-MYERS SQUIBB COMPANY-BMS-2020-012744

PATIENT
  Age: 62 Year
  Sex: Male
  Weight: 101.15 kg

DRUGS (1)
  1. ELIQUIS [Suspect]
     Active Substance: APIXABAN
     Indication: CEREBROVASCULAR ACCIDENT PROPHYLAXIS
     Dosage: 5 MILLIGRAM, BID
     Route: 048
     Dates: start: 201911

REACTIONS (5)
  - Back pain [Unknown]
  - Cerebrovascular accident [Recovered/Resolved]
  - Pain in extremity [Unknown]
  - Skin irritation [Unknown]
  - Myalgia [Unknown]

NARRATIVE: CASE EVENT DATE: 201911
